FAERS Safety Report 8200638-X (Version None)
Quarter: 2012Q1

REPORT INFORMATION
  Report Type: 
  Country: None (occurrence: None)
  Receive Date: 20120312
  Receipt Date: 20120305
  Transmission Date: 20120608
  Serious: Yes (Other)
  Sender: FDA-Public Use
  Company Number: DE-B.I. PHARMACEUTICALS,INC./RIDGEFIELD-2012-DE-00435DE

PATIENT
  Sex: Male
  Weight: 109 kg

DRUGS (18)
  1. BERODUAL [Concomitant]
  2. GLIMEPIRID [Concomitant]
  3. DIGOXIN [Concomitant]
  4. PENTAERYTHRITOL TETRANITRATE [Concomitant]
  5. SIMVASTATIN [Concomitant]
  6. VIANI FORTE [Concomitant]
     Dosage: STRENGTH: 50/500MCG
  7. AMILORID HCT [Concomitant]
  8. SPIRIVA [Concomitant]
  9. DIPYRONE TAB [Concomitant]
  10. PANTOPRAZOLE [Concomitant]
  11. PREDNISOLONE [Concomitant]
  12. PREDNICARBAT ACIS CREME [Concomitant]
  13. PRADAXA [Suspect]
     Indication: ATRIAL FIBRILLATION
     Dosage: 300 MG
     Route: 048
     Dates: start: 20120113, end: 20120207
  14. BRICANYL AMP [Concomitant]
  15. INSPRA [Concomitant]
  16. LOSARTAN POTASSIUM AND HYDROCHLOROTHIAZIDE [Concomitant]
     Dosage: STRENGTH: 50/12.5MG
  17. METFORMIN HCL [Concomitant]
  18. NITROLINGUAL [Concomitant]

REACTIONS (4)
  - DYSPNOEA [None]
  - OEDEMA PERIPHERAL [None]
  - SKIN HAEMORRHAGE [None]
  - HAEMOPTYSIS [None]
